FAERS Safety Report 6071056-8 (Version None)
Quarter: 2009Q1

REPORT INFORMATION
  Report Type: 
  Country: None (occurrence: None)
  Receive Date: 20090209
  Receipt Date: 20080714
  Transmission Date: 20090719
  Serious: No
  Sender: FDA-Public Use
  Company Number: A0737489A

PATIENT
  Age: 44 Year
  Sex: Female

DRUGS (5)
  1. PAXIL CR [Suspect]
     Dosage: 25MG PER DAY
     Route: 048
     Dates: end: 20080301
  2. NEXIUM [Concomitant]
  3. PERCOCET [Concomitant]
  4. VICODIN [Concomitant]
  5. PROPRANOLOL [Concomitant]

REACTIONS (2)
  - INSOMNIA [None]
  - NIGHTMARE [None]
